FAERS Safety Report 13533282 (Version 1)
Quarter: 2017Q2

REPORT INFORMATION
  Report Type: Spontaneous
  Country: CH (occurrence: CH)
  Receive Date: 20170510
  Receipt Date: 20170510
  Transmission Date: 20170830
  Serious: Yes (Hospitalization)
  Sender: FDA-Public Use
  Company Number: CH-MEDA-2017050038

PATIENT
  Age: 59 Year
  Sex: Male

DRUGS (13)
  1. TOREM [Suspect]
     Active Substance: TORSEMIDE
     Dosage: INCREASED FROM 50MG TO 200MG/DAY
     Route: 048
     Dates: start: 201703, end: 20170419
  2. COSAAR [Concomitant]
     Active Substance: LOSARTAN POTASSIUM
  3. NEXIUM [Concomitant]
     Active Substance: ESOMEPRAZOLE MAGNESIUM
  4. CALCIMAGON-D3 [Concomitant]
     Active Substance: CALCIUM\CHOLECALCIFEROL
  5. TAMOXIFENE [Concomitant]
     Active Substance: TAMOXIFEN
  6. CIRCADIN [Concomitant]
     Active Substance: MELATONIN
  7. TOREM [Suspect]
     Active Substance: TORSEMIDE
     Dates: start: 20170420
  8. FOSRENOL [Concomitant]
     Active Substance: LANTHANUM CARBONATE
  9. ZOLPIDEM [Concomitant]
     Active Substance: ZOLPIDEM\ZOLPIDEM TARTRATE
  10. CIPROFLOXACINE [Concomitant]
     Active Substance: CIPROFLOXACIN
     Dates: start: 20170405, end: 20170407
  11. LYRICA [Concomitant]
     Active Substance: PREGABALIN
     Dates: end: 20170410
  12. PRADIF [Concomitant]
     Active Substance: TAMSULOSIN HYDROCHLORIDE
     Dates: end: 20170417
  13. RENACET [Concomitant]

REACTIONS (5)
  - Vertigo [Recovering/Resolving]
  - Palpitations [Recovered/Resolved]
  - Paraesthesia [Recovered/Resolved]
  - Vision blurred [Recovered/Resolved]
  - Tinnitus [Recovering/Resolving]

NARRATIVE: CASE EVENT DATE: 20170406
